FAERS Safety Report 7802710 (Version 3)
Quarter: 2013Q2

REPORT INFORMATION
  Report Type: Report from Study
  Country: MX (occurrence: MX)
  Receive Date: 20110207
  Receipt Date: 20130528
  Transmission Date: 20140414
  Serious: Yes (Hospitalization, Other)
  Sender: FDA-Public Use
  Company Number: PHHY2011MX06730

PATIENT
  Age: 80 Year
  Sex: Male

DRUGS (3)
  1. CO-DIOVAN [Suspect]
     Indication: HYPERTENSION
     Dosage: 1 DF (160/25MG), UNK
     Route: 048
     Dates: start: 20101229, end: 20101231
  2. ASPIRINA [Concomitant]
     Dosage: UNK UKN, UNK
  3. BUMETANIDE [Concomitant]
     Dosage: UNK UKN, UNK

REACTIONS (4)
  - Pneumonia [Recovered/Resolved]
  - Bronchial disorder [Unknown]
  - Liver disorder [Unknown]
  - Renal disorder [Unknown]
